FAERS Safety Report 7334544-X (Version None)
Quarter: 2011Q1

REPORT INFORMATION
  Report Type: 
  Country: None (occurrence: None)
  Receive Date: 20110222
  Receipt Date: 20110207
  Transmission Date: 20110831
  Serious: Yes (Other)
  Sender: FDA-Public Use
  Company Number: B0700281A

PATIENT
  Age: 10 Month
  Sex: 0

DRUGS (3)
  1. MELPHALAN INJECTION (GENERIC) (MELPHALAN) [Suspect]
     Indication: RETINOBLASTOMA
     Dosage: 3 INJECTION, INTRAARTERIAL
     Route: 014
  2. ANESTH. FOR OP. PROCEDURE [Concomitant]
  3. HEPARIN [Concomitant]

REACTIONS (4)
  - TOXICITY TO VARIOUS AGENTS [None]
  - CONDITION AGGRAVATED [None]
  - VASOSPASM [None]
  - ANGIOPATHY [None]
